FAERS Safety Report 16967642 (Version 1)
Quarter: 2019Q4

REPORT INFORMATION
  Report Type: Report from Study
  Country: US (occurrence: US)
  Receive Date: 20191028
  Receipt Date: 20191028
  Transmission Date: 20200122
  Serious: Yes (Hospitalization)
  Sender: FDA-Public Use
  Company Number: US-JNJFOC-20190129077

PATIENT
  Age: 75 Year
  Sex: Female

DRUGS (21)
  1. INDERAL [Suspect]
     Active Substance: PROPRANOLOL HYDROCHLORIDE
     Indication: PRODUCT USED FOR UNKNOWN INDICATION
     Route: 065
  2. RESTORIL [Concomitant]
     Active Substance: TEMAZEPAM
  3. ATARAX [Concomitant]
     Active Substance: HYDROXYZINE HYDROCHLORIDE
  4. IMBRUVICA [Suspect]
     Active Substance: IBRUTINIB
     Indication: WALDENSTROM^S MACROGLOBULINAEMIA
     Dosage: 420 MG, QD
     Route: 048
     Dates: start: 20170210
  5. FERROUS GLUCONATE [Concomitant]
     Active Substance: FERROUS GLUCONATE
  6. HYDROCODONE [Concomitant]
     Active Substance: HYDROCODONE
  7. PREMARIN [Concomitant]
     Active Substance: ESTROGENS, CONJUGATED
  8. DEXILANT [Concomitant]
     Active Substance: DEXLANSOPRAZOLE
  9. PLAVIX [Concomitant]
     Active Substance: CLOPIDOGREL BISULFATE
  10. VITAMIN D NOS [Concomitant]
     Active Substance: VITAMIN D NOS
  11. PREDNISONE. [Concomitant]
     Active Substance: PREDNISONE
  12. FENTANYL. [Concomitant]
     Active Substance: FENTANYL
  13. PHENERGAN [Concomitant]
     Active Substance: PROMETHAZINE HYDROCHLORIDE
  14. NORCO [Concomitant]
     Active Substance: ACETAMINOPHEN\HYDROCODONE BITARTRATE
  15. OXYCONTIN [Concomitant]
     Active Substance: OXYCODONE HYDROCHLORIDE
     Indication: PRODUCT USED FOR UNKNOWN INDICATION
     Route: 065
  16. ASPIRIN                            /00002701/ [Concomitant]
     Active Substance: ASPIRIN
  17. FLONASE                            /00908302/ [Concomitant]
     Active Substance: MOMETASONE FUROATE
  18. AZELASTINE. [Concomitant]
     Active Substance: AZELASTINE HYDROCHLORIDE
  19. IMBRUVICA [Suspect]
     Active Substance: IBRUTINIB
     Dosage: 420 MG, QD
     Route: 048
     Dates: start: 20170410
  20. RITUXAN [Suspect]
     Active Substance: RITUXIMAB
     Route: 065
  21. IRON [Concomitant]
     Active Substance: IRON

REACTIONS (33)
  - Pyrexia [Unknown]
  - Blood immunoglobulin M decreased [Unknown]
  - Heart rate irregular [Unknown]
  - Hospitalisation [Recovered/Resolved]
  - Chest discomfort [Recovered/Resolved]
  - Hypersomnia [Unknown]
  - Heart rate decreased [Unknown]
  - Nausea [Unknown]
  - Asthenia [Recovering/Resolving]
  - Myalgia [Not Recovered/Not Resolved]
  - Bone pain [Not Recovered/Not Resolved]
  - Pneumonia [Unknown]
  - Insomnia [Recovering/Resolving]
  - Dyspepsia [Not Recovered/Not Resolved]
  - Headache [Unknown]
  - Oedema peripheral [Unknown]
  - Vomiting [Unknown]
  - Atrial fibrillation [Not Recovered/Not Resolved]
  - Ear discomfort [Recovering/Resolving]
  - Vertigo [Unknown]
  - Weight decreased [Unknown]
  - Pain in extremity [Not Recovered/Not Resolved]
  - Gastrooesophageal reflux disease [Unknown]
  - Throat tightness [Unknown]
  - Dysphonia [Unknown]
  - Arrhythmia [Unknown]
  - Haematoma [Unknown]
  - Night sweats [Unknown]
  - Adverse drug reaction [Unknown]
  - Dehydration [Unknown]
  - Muscle spasms [Recovered/Resolved]
  - Hiatus hernia [Unknown]
  - Rash [Recovering/Resolving]

NARRATIVE: CASE EVENT DATE: 20190830
